FAERS Safety Report 8217414-4 (Version None)
Quarter: 2012Q1

REPORT INFORMATION
  Report Type: 
  Country: None (occurrence: None)
  Receive Date: 20120313
  Receipt Date: 20120229
  Transmission Date: 20120608
  Serious: Yes (Hospitalization)
  Sender: FDA-Public Use
  Company Number: US-2012-10039

PATIENT
  Age: 44 Year
  Sex: Female
  Weight: 60 kg

DRUGS (3)
  1. MAGNESIUM (ALUMINIUM HYDROXYDE) [Concomitant]
  2. PERINDOPRIL (PERINDOPRIL ERBUMINE) [Concomitant]
  3. OPC-41061 (TOLVAPTAN) TABLET, 15MG MILLIGRAM(S) [Suspect]
     Indication: CONGENITAL CYSTIC KIDNEY DISEASE
     Dosage: 120 MG MILLIGRAM(S), DAILY DOSE, ORAL
     Route: 048
     Dates: start: 20111112, end: 20120111

REACTIONS (5)
  - HEPATIC CYST [None]
  - CYTOLYTIC HEPATITIS [None]
  - HYPERTENSION [None]
  - HEPATITIS CHOLESTATIC [None]
  - HEPATITIS [None]
